FAERS Safety Report 7146168-8 (Version None)
Quarter: 2010Q4

REPORT INFORMATION
  Report Type: 
  Country: None (occurrence: None)
  Receive Date: 20101208
  Receipt Date: 20101129
  Transmission Date: 20110411
  Serious: Yes (Hospitalization)
  Sender: FDA-Public Use
  Company Number: US-US-EMD SERONO, INC.-7029826

PATIENT
  Sex: Female
  Weight: 70 kg

DRUGS (5)
  1. REBIF [Suspect]
     Indication: MULTIPLE SCLEROSIS
     Route: 058
     Dates: start: 20070918
  2. NAPRELAN [Suspect]
     Indication: BURSITIS
     Dates: start: 20100401
  3. SINGULAIR [Concomitant]
     Indication: ASTHMA
  4. SYMBICORT [Concomitant]
     Indication: ASTHMA
  5. ALBUTEROL [Concomitant]
     Indication: ASTHMA

REACTIONS (6)
  - ARTHRALGIA [None]
  - BURSITIS [None]
  - GASTROINTESTINAL HAEMORRHAGE [None]
  - HAEMOGLOBIN DECREASED [None]
  - INFLUENZA LIKE ILLNESS [None]
  - INTESTINAL ULCER [None]
